FAERS Safety Report 5069449-0 (Version None)
Quarter: 2006Q3

REPORT INFORMATION
  Report Type: 
  Country: None (occurrence: None)
  Receive Date: 20060714
  Receipt Date: 20060418
  Transmission Date: 20061208
  Serious: No
  Sender: FDA-Public Use
  Company Number: 2006SP001757

PATIENT
  Sex: Female

DRUGS (6)
  1. LUNESTA [Suspect]
     Indication: INSOMNIA
     Dosage: 3 MG;HS;ORAL
     Route: 048
     Dates: start: 20050101, end: 20050101
  2. LUNESTA [Suspect]
     Indication: INSOMNIA
     Dosage: 3 MG;HS;ORAL
     Route: 048
     Dates: start: 20050101
  3. SYNTHROID [Concomitant]
  4. NEXIUM [Concomitant]
  5. LEXAPRO [Concomitant]
  6. PRAVACHOL [Concomitant]

REACTIONS (1)
  - DRUG EFFECT DECREASED [None]
